FAERS Safety Report 9211050 (Version 1)
Quarter: 2013Q2

REPORT INFORMATION
  Report Type: Spontaneous
  Country: US (occurrence: US)
  Receive Date: 20130404
  Receipt Date: 20130404
  Transmission Date: 20140414
  Serious: Yes (Other)
  Sender: FDA-Public Use
  Company Number: CHPA2013US005642

PATIENT
  Age: 50 Year
  Sex: Female

DRUGS (2)
  1. EXCEDRIN MIGRAINE [Suspect]
     Dosage: 1 PILL, PRN
  2. EXCEDRIN MIGRAINE [Suspect]
     Dosage: 1 PILL, IN THE MORNING

REACTIONS (3)
  - Thyroid cancer [Unknown]
  - Ankle fracture [Unknown]
  - Incorrect dose administered [Unknown]
